FAERS Safety Report 21178972 (Version 1)
Quarter: 2022Q3

REPORT INFORMATION
  Report Type: Spontaneous
  Country: FR (occurrence: FR)
  Receive Date: 20220805
  Receipt Date: 20220805
  Transmission Date: 20221027
  Serious: Yes (Other)
  Sender: FDA-Public Use
  Company Number: None

PATIENT

DRUGS (2)
  1. DEXTROSE [Suspect]
     Active Substance: DEXTROSE
     Indication: Wrong product administered
     Dosage: UNK
     Route: 042
     Dates: start: 20211023, end: 20211023
  2. DEXTROSE [Suspect]
     Active Substance: DEXTROSE
     Indication: Wrong rate
     Dosage: UNK
     Route: 042
     Dates: start: 20211023, end: 20211023

REACTIONS (5)
  - Hypoglycaemia [Recovered/Resolved]
  - Product confusion [Recovered/Resolved]
  - Wrong product administered [Recovered/Resolved]
  - Wrong rate [Recovered/Resolved]
  - Product administration error [Recovered/Resolved]

NARRATIVE: CASE EVENT DATE: 20211023
